FAERS Safety Report 5809312-8 (Version None)
Quarter: 2008Q3

REPORT INFORMATION
  Report Type: 
  Country: None (occurrence: None)
  Receive Date: 20080714
  Receipt Date: 20080617
  Transmission Date: 20090109
  Serious: No
  Sender: FDA-Public Use
  Company Number: US-BOEHRINGER INGELHEIM GMBH, GERMANY-2008-BP-09451BP

PATIENT
  Age: 66 Year
  Sex: Male
  Weight: 95 kg

DRUGS (10)
  1. MICARDIS [Suspect]
  2. TOPROL-XL [Concomitant]
  3. BENICAR [Concomitant]
  4. GEMFIBROZIL [Concomitant]
  5. ASPIRIN [Concomitant]
  6. CALCIUM [Concomitant]
  7. GLUCOSAMINE [Concomitant]
  8. FISH OIL [Concomitant]
  9. TYLENOL [Concomitant]
  10. PRILOSEC [Concomitant]

REACTIONS (4)
  - COUGH [None]
  - DRY MOUTH [None]
  - MYALGIA [None]
  - NIGHTMARE [None]
